FAERS Safety Report 16518225 (Version 4)
Quarter: 2019Q3

REPORT INFORMATION
  Report Type: Spontaneous
  Country: US (occurrence: US)
  Receive Date: 20190702
  Receipt Date: 20190920
  Transmission Date: 20191004
  Serious: No
  Sender: FDA-Public Use
  Company Number: US-PFIZER INC-2019283481

PATIENT
  Age: 60 Year
  Sex: Female

DRUGS (3)
  1. GABAPENTIN. [Suspect]
     Active Substance: GABAPENTIN
     Indication: PAIN
     Dosage: 300 MG, 2X/DAY(TAKE 300 MG BID MORNING AND AFTERNOON)
  2. GABAPENTIN. [Suspect]
     Active Substance: GABAPENTIN
     Dosage: 900 MG, 1X/DAY(TAKE 900 MG Q HS BEDTIME)
  3. HEROIN [Concomitant]
     Active Substance: DIAMORPHINE
     Dosage: UNK

REACTIONS (6)
  - Off label use [Unknown]
  - Lethargy [Unknown]
  - Apathy [Unknown]
  - Dysphemia [Recovered/Resolved]
  - Product use in unapproved indication [Unknown]
  - Feeling drunk [Unknown]
